FAERS Safety Report 6089150-4 (Version None)
Quarter: 2009Q1

REPORT INFORMATION
  Report Type: 
  Country: None (occurrence: None)
  Receive Date: 20090224
  Receipt Date: 20090213
  Transmission Date: 20090719
  Serious: Yes (Hospitalization)
  Sender: FDA-Public Use
  Company Number: FR-TEVA-185723ISR

PATIENT
  Age: 59 Year
  Sex: Male

DRUGS (6)
  1. FLUOROURACIL [Suspect]
     Indication: GASTRIC CANCER
  2. FOLINIC ACID [Suspect]
     Indication: GASTRIC CANCER
  3. IRINOTECAN HYDROCHLORIDE [Suspect]
     Indication: GASTRIC CANCER
  4. LORAZEPAM [Concomitant]
     Dates: start: 20060201
  5. OMEPRAZOLE [Concomitant]
     Dates: start: 20060201
  6. METOCLOPRAMIDE [Concomitant]
     Dates: start: 20060201

REACTIONS (1)
  - HAEMATEMESIS [None]
